FAERS Safety Report 13213960 (Version 1)
Quarter: 2017Q1

REPORT INFORMATION
  Report Type: Spontaneous
  Country: US (occurrence: US)
  Receive Date: 20170210
  Receipt Date: 20170210
  Transmission Date: 20170428
  Serious: Yes (Hospitalization)
  Sender: FDA-Public Use
  Company Number: US-VIFOR (INTERNATIONAL) INC.-VIT-2017-01324

PATIENT
  Sex: Male

DRUGS (14)
  1. LEXAPRO [Concomitant]
     Active Substance: ESCITALOPRAM OXALATE
  2. RENALVITE [Concomitant]
  3. ZETIA [Concomitant]
     Active Substance: EZETIMIBE
  4. VELTASSA [Suspect]
     Active Substance: PATIROMER
     Indication: HYPERKALAEMIA
     Route: 048
     Dates: start: 20160823
  5. METOPROLOL. [Concomitant]
     Active Substance: METOPROLOL
  6. CLONAZEPAM. [Concomitant]
     Active Substance: CLONAZEPAM
  7. PARACETAMOL/HYDROCODONE [Concomitant]
  8. GLYCERYL TRINITRATE [Concomitant]
     Active Substance: NITROGLYCERIN
  9. RENVELA [Concomitant]
     Active Substance: SEVELAMER CARBONATE
  10. SENSIPAR [Concomitant]
     Active Substance: CINACALCET HYDROCHLORIDE
  11. ACETYLSALICYLIC ACID [Concomitant]
     Active Substance: ASPIRIN
  12. ATORVASTATIN [Concomitant]
     Active Substance: ATORVASTATIN
  13. DULOXETINE. [Concomitant]
     Active Substance: DULOXETINE
  14. OMEPRAZOLE. [Concomitant]
     Active Substance: OMEPRAZOLE

REACTIONS (1)
  - Diabetic foot [Unknown]
